FAERS Safety Report 5357352-8 (Version None)
Quarter: 2007Q2

REPORT INFORMATION
  Report Type: 
  Country: None (occurrence: None)
  Receive Date: 20070614
  Receipt Date: 20070612
  Transmission Date: 20071010
  Serious: Yes (Death, Life-Threatening, Hospitalization, Disabling)
  Sender: FDA-Public Use
  Company Number: A0655302A

PATIENT
  Age: 30 Year
  Sex: Male

DRUGS (5)
  1. AUGMENTIN '125' [Suspect]
     Dosage: 500MG SEE DOSAGE TEXT
     Route: 048
  2. TYLENOL W/ CODEINE [Concomitant]
  3. COGENTIN [Concomitant]
  4. DOCUSATE SODIUM [Concomitant]
  5. BENADRYL [Concomitant]

REACTIONS (9)
  - BELLIGERENCE [None]
  - CAROTID ARTERY STENOSIS [None]
  - CONFUSIONAL STATE [None]
  - CORONARY ARTERY DISEASE [None]
  - HEPATOSPLENOMEGALY [None]
  - PHARYNGITIS [None]
  - PULMONARY OEDEMA [None]
  - SPLENIC INFARCTION [None]
  - SUDDEN DEATH [None]
